FAERS Safety Report 18324160 (Version 1)
Quarter: 2020Q3

REPORT INFORMATION
  Report Type: Spontaneous
  Country: US (occurrence: US)
  Receive Date: 20200928
  Receipt Date: 20200928
  Transmission Date: 20201103
  Serious: Yes (Death, Hospitalization)
  Sender: FDA-Public Use
  Company Number: US-BAUSCH-BL-2020-027127

PATIENT
  Age: 53 Year
  Sex: Male

DRUGS (1)
  1. RETISERT [Suspect]
     Active Substance: FLUOCINOLONE ACETONIDE
     Indication: CHORIORETINITIS
     Route: 031

REACTIONS (1)
  - Pneumonia [Fatal]
